FAERS Safety Report 6662430-7 (Version None)
Quarter: 2010Q1

REPORT INFORMATION
  Report Type: 
  Country: None (occurrence: None)
  Receive Date: 20100331
  Receipt Date: 20100319
  Transmission Date: 20100710
  Serious: Yes (Other)
  Sender: FDA-Public Use
  Company Number: DE-WATSON-2010-04008

PATIENT
  Age: 37 Year
  Sex: Female

DRUGS (1)
  1. RISPERIDONE [Suspect]
     Indication: DELUSIONAL DISORDER, UNSPECIFIED TYPE
     Dosage: LOW DOSE, UNK
     Route: 065

REACTIONS (2)
  - DRUG LEVEL INCREASED [None]
  - DRUG TOXICITY [None]
